FAERS Safety Report 5994757-6 (Version None)
Quarter: 2008Q4

REPORT INFORMATION
  Report Type: 
  Country: None (occurrence: None)
  Receive Date: 20081209
  Receipt Date: 20080918
  Transmission Date: 20090506
  Serious: No
  Sender: FDA-Public Use
  Company Number: 002#2#2008-00677

PATIENT
  Age: 64 Year
  Sex: Male
  Weight: 90.7194 kg

DRUGS (4)
  1. NEUPRO [Suspect]
     Indication: PARKINSON'S DISEASE
     Dosage: 4MG/24H,1 IN 1 D,TRANSDERMAL ; 6MG/24H,1 IN 1 D,TRANSDERMAL ; 4MG/24H,1 IN 1 D,TRANSDERMAL
     Route: 062
     Dates: start: 20071001, end: 20080501
  2. NEUPRO [Suspect]
     Indication: PARKINSON'S DISEASE
     Dosage: 4MG/24H,1 IN 1 D,TRANSDERMAL ; 6MG/24H,1 IN 1 D,TRANSDERMAL ; 4MG/24H,1 IN 1 D,TRANSDERMAL
     Route: 062
     Dates: start: 20071001
  3. NEUPRO [Suspect]
     Indication: PARKINSON'S DISEASE
     Dosage: 4MG/24H,1 IN 1 D,TRANSDERMAL ; 6MG/24H,1 IN 1 D,TRANSDERMAL ; 4MG/24H,1 IN 1 D,TRANSDERMAL
     Route: 062
     Dates: start: 20071001
  4. SINEMET CR [Concomitant]

REACTIONS (2)
  - DRUG INEFFECTIVE [None]
  - PRODUCT QUALITY ISSUE [None]
